FAERS Safety Report 5162162-0 (Version None)
Quarter: 2006Q4

REPORT INFORMATION
  Report Type: 
  Country: None (occurrence: None)
  Receive Date: 20061121
  Receipt Date: 20061113
  Transmission Date: 20070319
  Serious: Yes (Other)
  Sender: FDA-Public Use
  Company Number: CHNY2006GB02477

PATIENT
  Sex: Male

DRUGS (1)
  1. SCOPODERM TTS (NCH) (HYOSCINE HYDROBROMIDE) UNKNOWN [Suspect]
     Indication: MOTION SICKNESS
     Dosage: 2 OCCASIONS, TRANSDERMAL
     Route: 062

REACTIONS (1)
  - PRIAPISM [None]
